FAERS Safety Report 16339208 (Version 1)
Quarter: 2019Q2

REPORT INFORMATION
  Report Type: Spontaneous
  Country: JP (occurrence: JP)
  Receive Date: 20190521
  Receipt Date: 20190521
  Transmission Date: 20190711
  Serious: Yes (Other)
  Sender: FDA-Public Use
  Company Number: JP-SHIRE-JP201915941AA

PATIENT

DRUGS (1)
  1. AGRYLIN [Suspect]
     Active Substance: ANAGRELIDE HYDROCHLORIDE
     Indication: PRODUCT USED FOR UNKNOWN INDICATION
     Dosage: UNK
     Route: 065
     Dates: start: 2001

REACTIONS (7)
  - Headache [Unknown]
  - Palpitations [Unknown]
  - Epistaxis [Unknown]
  - Pancreatitis acute [Unknown]
  - Abdominal pain [Unknown]
  - Diarrhoea [Unknown]
  - Chest pain [Unknown]
